FAERS Safety Report 20423599 (Version 2)
Quarter: 2022Q1

REPORT INFORMATION
  Report Type: Spontaneous
  Country: PL (occurrence: PL)
  Receive Date: 20220203
  Receipt Date: 20220218
  Transmission Date: 20220423
  Serious: Yes (Hospitalization, Other)
  Sender: FDA-Public Use
  Company Number: PL-TEVA-2022-PL-2003286

PATIENT
  Age: 7 Year
  Sex: Male

DRUGS (8)
  1. VINCRISTINE [Suspect]
     Active Substance: VINCRISTINE
     Indication: Acute lymphocytic leukaemia recurrent
     Dosage: 1.5 MG/M2 DAILY; ON DAY 1, 8, 15 AND 22 OF THE PROTOCOL (SCA 1 COURSE)
     Route: 065
     Dates: start: 201812
  2. VANCOMYCIN [Suspect]
     Active Substance: VANCOMYCIN
     Indication: Product used for unknown indication
     Route: 065
  3. DEXAMETHASONE [Suspect]
     Active Substance: DEXAMETHASONE
     Indication: Acute lymphocytic leukaemia recurrent
     Dosage: 6 MG/M2 DAILY; (SCA 1 COURSE)
     Route: 065
     Dates: start: 201812
  4. IDARUBICIN [Suspect]
     Active Substance: IDARUBICIN
     Indication: Acute lymphocytic leukaemia recurrent
     Dosage: 6 MG/M2 DAILY; ON DAY 1, 8, 15 AND 22 OF THE PROTOCOL (SCA 1 COURSE)
     Route: 065
     Dates: start: 201812
  5. PEG/L-ASPARAGINASE [Suspect]
     Active Substance: PEGASPARGASE
     Indication: Acute lymphocytic leukaemia recurrent
     Dosage: 1000 U/M2 ON DAY 1 AND 11 OF THE PROTOCOL (SCA 1 COURSE)
     Route: 065
     Dates: start: 201812
  6. CYCLOPHOSPHAMIDE [Suspect]
     Active Substance: CYCLOPHOSPHAMIDE
     Indication: Acute lymphocytic leukaemia recurrent
     Dosage: 1 G/M2 ON DAY 1 OF THE PROTOCOL (SCA 2 COURSE)
     Route: 065
  7. CYTARABINE [Suspect]
     Active Substance: CYTARABINE
     Indication: Acute lymphocytic leukaemia recurrent
     Dosage: 75 MG/M2 DAILY; ON DAY 3, 4, 5, 6, 10, 11, 12, 13 OF THE PROTOCOL (SCA 2 COURSE)
     Route: 065
  8. THIOGUANINE ANHYDROUS [Suspect]
     Active Substance: THIOGUANINE ANHYDROUS
     Indication: Acute lymphocytic leukaemia recurrent
     Dosage: 60 MG/M2 DAILY; (SCA 2 COURSE)
     Route: 065

REACTIONS (4)
  - Hypersensitivity [Unknown]
  - Anaphylactic shock [Unknown]
  - Lower respiratory tract infection bacterial [Recovering/Resolving]
  - Pneumonia mycoplasmal [Recovering/Resolving]
